FAERS Safety Report 7234226-9 (Version None)
Quarter: 2011Q1

REPORT INFORMATION
  Report Type: 
  Country: None (occurrence: None)
  Receive Date: 20110119
  Receipt Date: 20110114
  Transmission Date: 20110831
  Serious: Yes (Other)
  Sender: FDA-Public Use
  Company Number: US-PFIZER INC-2010166773

PATIENT
  Sex: Female
  Weight: 104 kg

DRUGS (4)
  1. XANAX [Suspect]
     Indication: PANIC ATTACK
     Dosage: 0.5 MG, 2X/DAY, AS NEEDED
     Route: 048
     Dates: start: 20100701
  2. CHANTIX [Suspect]
     Indication: SMOKING CESSATION THERAPY
     Dosage: 0.5 MG, 1X/DAY
     Route: 048
     Dates: start: 20101111
  3. XANAX [Suspect]
     Indication: ANXIETY
     Dosage: 0.5 MG, 1X/DAY
     Route: 048
     Dates: start: 20100801
  4. CHANTIX [Suspect]
     Dosage: 1 MG, CONTINUATION PACK, AS DIRECTED
     Route: 048
     Dates: start: 20101125

REACTIONS (2)
  - ANXIETY [None]
  - BLOOD CHOLESTEROL INCREASED [None]
